FAERS Safety Report 7446711-5 (Version None)
Quarter: 2011Q2

REPORT INFORMATION
  Report Type: 
  Country: None (occurrence: None)
  Receive Date: 20110429
  Receipt Date: 20100929
  Transmission Date: 20111010
  Serious: No
  Sender: FDA-Public Use
  Company Number: US-ASTRAZENECA-2010SE45771

PATIENT
  Age: 25311 Day
  Sex: Female
  Weight: 61.7 kg

DRUGS (2)
  1. NEXIUM [Suspect]
     Indication: GASTROOESOPHAGEAL REFLUX DISEASE
     Route: 048
     Dates: start: 20100727, end: 20100729
  2. OMEPRAZOLE [Suspect]
     Route: 048

REACTIONS (3)
  - GASTRITIS [None]
  - INSOMNIA [None]
  - ABDOMINAL DISTENSION [None]
